FAERS Safety Report 15960468 (Version 1)
Quarter: 2019Q1

REPORT INFORMATION
  Report Type: Spontaneous
  Country: US (occurrence: US)
  Receive Date: 20190214
  Receipt Date: 20190214
  Transmission Date: 20190417
  Serious: No
  Sender: FDA-Public Use
  Company Number: US-ROCHE-2191996

PATIENT
  Age: 28 Year
  Sex: Female

DRUGS (1)
  1. ERIVEDGE [Suspect]
     Active Substance: VISMODEGIB
     Indication: BRAIN NEOPLASM MALIGNANT
     Route: 048
     Dates: start: 201801

REACTIONS (4)
  - Muscle spasms [Unknown]
  - Off label use [Unknown]
  - Intentional product use issue [Unknown]
  - Headache [Not Recovered/Not Resolved]

NARRATIVE: CASE EVENT DATE: 201801
